FAERS Safety Report 7996276-4 (Version None)
Quarter: 2011Q4

REPORT INFORMATION
  Report Type: 
  Country: None (occurrence: None)
  Receive Date: 20111220
  Receipt Date: 20111215
  Transmission Date: 20120403
  Serious: Yes (Hospitalization)
  Sender: FDA-Public Use
  Company Number: US-ELI_LILLY_AND_COMPANY-US201112004264

PATIENT
  Age: 54 Year
  Sex: Male

DRUGS (8)
  1. COUMADIN [Concomitant]
     Dosage: 5 MG, QD
  2. EFFIENT [Suspect]
     Indication: STENT PLACEMENT
     Dosage: 10 MG, QD
     Dates: start: 20111001, end: 20111214
  3. PEPCID [Concomitant]
     Dosage: 20 MG, QD
  4. NITROGLYCERIN [Concomitant]
     Dosage: UNK, PRN
  5. ATORVASTATIN [Concomitant]
     Dosage: 80 MG, QD
  6. METOPROLOL TARTRATE [Concomitant]
     Dosage: 50 MG, BID
  7. ASPIRIN [Concomitant]
     Dosage: 325 MG, QD
  8. LEXAPRO [Concomitant]
     Dosage: 20 MG, QD

REACTIONS (1)
  - PANCREATITIS ACUTE [None]
